FAERS Safety Report 15774889 (Version 1)
Quarter: 2018Q4

REPORT INFORMATION
  Report Type: Report from Study
  Country: CA (occurrence: CA)
  Receive Date: 20181230
  Receipt Date: 20181230
  Transmission Date: 20190205
  Serious: Yes (Hospitalization, Other)
  Sender: FDA-Public Use
  Company Number: CA-BRISTOL-MYERS SQUIBB COMPANY-BMS-2018-120432

PATIENT
  Age: 59 Year
  Sex: Female

DRUGS (2)
  1. YERVOY [Suspect]
     Active Substance: IPILIMUMAB
     Indication: RENAL CELL CARCINOMA
     Dosage: 1 MG/ML, Q3WK
     Route: 042
     Dates: start: 20181207
  2. NIVOLUMAB [Suspect]
     Active Substance: NIVOLUMAB
     Indication: RENAL CELL CARCINOMA
     Dosage: 3 MG/KG, Q3WK
     Route: 042
     Dates: start: 20181207

REACTIONS (13)
  - Weight fluctuation [Unknown]
  - Diarrhoea [Recovered/Resolved]
  - Joint swelling [Recovered/Resolved]
  - Blood potassium increased [Unknown]
  - Hypotension [Unknown]
  - Chromaturia [Unknown]
  - Asthenia [Unknown]
  - Blood creatinine abnormal [Unknown]
  - Dizziness [Unknown]
  - Nausea [Recovered/Resolved]
  - Vomiting [Recovered/Resolved]
  - Fatigue [Unknown]
  - Insomnia [Unknown]

NARRATIVE: CASE EVENT DATE: 20181207
